FAERS Safety Report 22299916 (Version 3)
Quarter: 2023Q2

REPORT INFORMATION
  Report Type: Report from Study
  Country: US (occurrence: US)
  Receive Date: 20230509
  Receipt Date: 20230620
  Transmission Date: 20230722
  Serious: Yes (Hospitalization, Other)
  Sender: FDA-Public Use
  Company Number: US-ABBVIE-4292423

PATIENT
  Age: 76 Year
  Sex: Female

DRUGS (2)
  1. HUMIRA [Suspect]
     Active Substance: ADALIMUMAB
     Indication: Ankylosing spondylitis
     Dosage: STRENGTH: 40 MILLIGRAM?CITRATE FREE
     Route: 058
  2. HUMIRA [Suspect]
     Active Substance: ADALIMUMAB
     Dosage: STRENGTH: 40 MILLIGRAM?CITRATE FREE
     Route: 058
     Dates: start: 20201001

REACTIONS (22)
  - Escherichia infection [Unknown]
  - Fall [Unknown]
  - Joint range of motion decreased [Unknown]
  - Peripheral swelling [Unknown]
  - Rehabilitation therapy [Unknown]
  - Ankylosing spondylitis [Unknown]
  - Restlessness [Unknown]
  - Medical device site joint infection [Unknown]
  - Urosepsis [Unknown]
  - Respiratory failure [Recovered/Resolved]
  - Septic shock [Unknown]
  - Ureterolithiasis [Unknown]
  - Asthenia [Unknown]
  - Muscle spasms [Unknown]
  - Pain in extremity [Unknown]
  - Skin discolouration [Unknown]
  - Dyspnoea [Unknown]
  - Mental disorder [Unknown]
  - Drug hypersensitivity [Unknown]
  - Sepsis [Unknown]
  - Renal surgery [Unknown]
  - Nephritis [Unknown]

NARRATIVE: CASE EVENT DATE: 20220901
